FAERS Safety Report 17366598 (Version 2)
Quarter: 2020Q1

REPORT INFORMATION
  Report Type: Spontaneous
  Country: US (occurrence: US)
  Receive Date: 20200204
  Receipt Date: 20200210
  Transmission Date: 20200409
  Serious: No
  Sender: FDA-Public Use
  Company Number: US-PFIZER INC-2020046240

PATIENT
  Sex: Female

DRUGS (1)
  1. GABAPENTIN. [Suspect]
     Active Substance: GABAPENTIN
     Dosage: UNK

REACTIONS (6)
  - Feeling abnormal [Unknown]
  - Diarrhoea [Unknown]
  - Hunger [Unknown]
  - Contraindicated product prescribed [Unknown]
  - Irritability [Unknown]
  - Reaction to excipient [Unknown]
